FAERS Safety Report 5953246-5 (Version None)
Quarter: 2008Q4

REPORT INFORMATION
  Report Type: 
  Country: None (occurrence: None)
  Receive Date: 20081114
  Receipt Date: 20081106
  Transmission Date: 20090506
  Serious: Yes (Other)
  Sender: FDA-Public Use
  Company Number: PHFR2008IE01434

PATIENT
  Sex: Male

DRUGS (1)
  1. CLOZAPINE [Suspect]
     Indication: SCHIZOPHRENIA
     Dosage: 350MG/DAY
     Route: 048
     Dates: start: 20061117

REACTIONS (4)
  - DRUG EFFECT DECREASED [None]
  - DRUG LEVEL INCREASED [None]
  - PSYCHOTIC DISORDER [None]
  - SALIVARY HYPERSECRETION [None]
